FAERS Safety Report 6589230-0 (Version None)
Quarter: 2010Q1

REPORT INFORMATION
  Report Type: 
  Country: None (occurrence: None)
  Receive Date: 20100218
  Receipt Date: 20100208
  Transmission Date: 20100710
  Serious: Yes (Hospitalization, Other)
  Sender: FDA-Public Use
  Company Number: BR-ABBOTT-10P-020-0625145-00

PATIENT
  Sex: Female
  Weight: 77 kg

DRUGS (11)
  1. HUMIRA [Suspect]
     Indication: RHEUMATOID ARTHRITIS
     Route: 058
     Dates: end: 20091101
  2. PANTOPRAZOLE [Concomitant]
     Indication: GASTRIC DISORDER
     Route: 048
  3. CARVEDILOL [Concomitant]
     Indication: HYPERTENSION
     Route: 048
  4. DAFLON [Concomitant]
     Indication: PROPHYLAXIS
     Route: 048
  5. DAFLON [Concomitant]
     Indication: SWELLING
  6. BUFFERIN CARDIO [Concomitant]
     Indication: ANTICOAGULANT THERAPY
     Route: 048
  7. ATORVASTATIN [Concomitant]
     Indication: BLOOD CHOLESTEROL INCREASED
     Route: 048
  8. SPIRONOLACTONE [Concomitant]
     Indication: DIURETIC THERAPY
     Route: 048
  9. VALSIVA [Concomitant]
     Indication: OSTEOPOROSIS
     Route: 048
  10. OSCAL D [Concomitant]
     Indication: OSTEOPOROSIS
     Route: 048
  11. NEUTROFER [Concomitant]
     Indication: ANAEMIA
     Route: 048

REACTIONS (1)
  - HERNIA [None]
